FAERS Safety Report 5275989-1 (Version None)
Quarter: 2007Q1

REPORT INFORMATION
  Report Type: 
  Country: None (occurrence: None)
  Receive Date: 20070326
  Receipt Date: 20070315
  Transmission Date: 20070707
  Serious: Yes (Other)
  Sender: FDA-Public Use
  Company Number: JP-ROCHE-488571

PATIENT
  Age: 34 Year
  Sex: Male

DRUGS (2)
  1. TAMIFLU [Suspect]
     Route: 048
     Dates: start: 20070228, end: 20070301
  2. CALONAL [Concomitant]
     Dosage: GENERIC REPORTED AS ACETAMINOPHEN.
     Route: 048
     Dates: start: 20070228

REACTIONS (1)
  - RASH ERYTHEMATOUS [None]
